FAERS Safety Report 8699585 (Version 2)
Quarter: 2012Q4

REPORT INFORMATION
  Report Type: 
  Country: US (occurrence: US)
  Receive Date: 20120802
  Receipt Date: 20121024
  Transmission Date: 20130627
  Serious: No
  Sender: FDA-Public Use
  Company Number: US-B.I. PHARMACEUTICALS,INC./RIDGEFIELD-2012-BP-16470BP

PATIENT
  Sex: Male
  Weight: 90 kg

DRUGS (11)
  1. TRADJENTA [Suspect]
     Indication: DIABETES MELLITUS INADEQUATE CONTROL
     Dosage: 5 mg
     Route: 048
     Dates: start: 20120604, end: 20120910
  2. CIPRO [Concomitant]
     Indication: PROSTATE INFECTION
     Dates: start: 201207, end: 201207
  3. CIPRO [Concomitant]
     Indication: PROSTATITIS
  4. FLOMAX [Concomitant]
     Indication: BENIGN PROSTATIC HYPERPLASIA
     Dosage: 0.4 mg
     Route: 048
     Dates: start: 201207, end: 201207
  5. FLOMAX [Concomitant]
     Indication: PROSTATITIS
  6. SYMBICORT [Concomitant]
     Indication: ASTHMA
     Dates: start: 20120706
  7. METFORMIN [Concomitant]
     Indication: DIABETES MELLITUS
     Dates: start: 20120604, end: 20120710
  8. GLIMEPIRIDE [Concomitant]
     Indication: DIABETES MELLITUS
     Dosage: 8 mg
     Dates: start: 20101122
  9. SINGULAIR [Concomitant]
     Indication: ASTHMA
     Dosage: 10 mg
     Dates: start: 20100628, end: 20120710
  10. SINGULAIR [Concomitant]
     Indication: MULTIPLE ALLERGIES
  11. VENTOLIN HFA [Concomitant]
     Indication: ASTHMA
     Dates: start: 20101118

REACTIONS (5)
  - Paranoia [Not Recovered/Not Resolved]
  - Abnormal behaviour [Not Recovered/Not Resolved]
  - Insomnia [Not Recovered/Not Resolved]
  - Amnesia [Not Recovered/Not Resolved]
  - Psychotic disorder [Recovered/Resolved]
